FAERS Safety Report 4689818-8 (Version None)
Quarter: 2005Q2

REPORT INFORMATION
  Report Type: 
  Country: None (occurrence: None)
  Receive Date: 20050608
  Receipt Date: 20040804
  Transmission Date: 20051028
  Serious: Yes (Hospitalization)
  Sender: FDA-Public Use
  Company Number: 376875

PATIENT
  Age: 15 Year
  Sex: Male

DRUGS (1)
  1. ACCUTANE [Suspect]
     Indication: ACNE
     Dates: start: 19980615, end: 19980605

REACTIONS (23)
  - ABDOMINAL PAIN [None]
  - ACNE [None]
  - AMNESIA [None]
  - CAECITIS [None]
  - CROHN'S DISEASE [None]
  - DEPRESSION [None]
  - DIARRHOEA [None]
  - DIZZINESS [None]
  - FATIGUE [None]
  - GASTROINTESTINAL NECROSIS [None]
  - GASTROINTESTINAL OBSTRUCTION [None]
  - HALLUCINATION [None]
  - IMMUNE SYSTEM DISORDER [None]
  - IMMUNODEFICIENCY [None]
  - INTESTINAL DILATATION [None]
  - INTESTINAL ULCER [None]
  - INTESTINAL VILLI ATROPHY [None]
  - IRON DEFICIENCY ANAEMIA [None]
  - MUSCLE TIGHTNESS [None]
  - POLYP [None]
  - PSEUDOPOLYP [None]
  - RECTAL HAEMORRHAGE [None]
  - VISION BLURRED [None]
